FAERS Safety Report 9127419 (Version 2)
Quarter: 2013Q2

REPORT INFORMATION
  Report Type: Spontaneous
  Country: US (occurrence: US)
  Receive Date: 20130228
  Receipt Date: 20130501
  Transmission Date: 20140414
  Serious: Yes (Hospitalization, Other)
  Sender: FDA-Public Use
  Company Number: US-SANOFI-AVENTIS-2013SA014250

PATIENT
  Age: 68 Year
  Sex: Female
  Weight: 64.64 kg

DRUGS (2)
  1. ZALTRAP [Suspect]
     Indication: COLORECTAL CANCER
     Route: 041
     Dates: start: 20130110, end: 20130110
  2. ZALTRAP [Suspect]
     Indication: COLORECTAL CANCER
     Dates: start: 20130117, end: 20130117

REACTIONS (6)
  - Encephalopathy [Recovering/Resolving]
  - Disorientation [Recovering/Resolving]
  - Incoherent [Recovering/Resolving]
  - Headache [Recovering/Resolving]
  - Hypertension [Recovering/Resolving]
  - Convulsion [Unknown]
